FAERS Safety Report 7325743-1 (Version None)
Quarter: 2011Q1

REPORT INFORMATION
  Report Type: 
  Country: None (occurrence: None)
  Receive Date: 20110302
  Receipt Date: 20110223
  Transmission Date: 20110831
  Serious: Yes (Other)
  Sender: FDA-Public Use
  Company Number: DE-PFIZER INC-2011026689

PATIENT
  Age: 60 Year
  Sex: Female
  Weight: 60 kg

DRUGS (2)
  1. AROMASIN [Suspect]
     Indication: BREAST CANCER
     Dosage: 25 MG, 1X/DAY
     Dates: start: 20100215, end: 20110101
  2. AROMASIN [Suspect]
     Indication: BREAST CANCER FEMALE

REACTIONS (5)
  - CONDITION AGGRAVATED [None]
  - MYALGIA [None]
  - OSTEOARTHRITIS [None]
  - ARTHRALGIA [None]
  - ARTHRITIS [None]
